FAERS Safety Report 14008841 (Version 1)
Quarter: 2017Q3

REPORT INFORMATION
  Report Type: Spontaneous
  Country: MX (occurrence: MX)
  Receive Date: 20170925
  Receipt Date: 20170925
  Transmission Date: 20171128
  Serious: Yes (Other)
  Sender: FDA-Public Use
  Company Number: MX-TEVA-807467ISR

PATIENT
  Sex: Male

DRUGS (3)
  1. PRAMIPEXOLE. [Concomitant]
     Active Substance: PRAMIPEXOLE
     Route: 065
  2. AZILECT [Suspect]
     Active Substance: RASAGILINE MESYLATE
     Indication: PARKINSON^S DISEASE
     Dosage: 1 MILLIGRAM DAILY; 1 MG
     Route: 048
     Dates: start: 20141002
  3. LEVODOPA [Concomitant]
     Active Substance: LEVODOPA
     Route: 065

REACTIONS (1)
  - Thalamotomy [Unknown]
